FAERS Safety Report 9832440 (Version 2)
Quarter: 2014Q1

REPORT INFORMATION
  Report Type: Spontaneous
  Country: JP (occurrence: JP)
  Receive Date: 20140121
  Receipt Date: 20140127
  Transmission Date: 20141002
  Serious: Yes (Hospitalization)
  Sender: FDA-Public Use
  Company Number: JP-BAYER-2014-004634

PATIENT
  Age: 30 Year
  Sex: Male

DRUGS (2)
  1. BAYASPIRIN [Suspect]
     Indication: CAROTID ARTERY DISSECTION
     Dosage: 100 MG, DAILY DOSE
     Route: 048
  2. BAYASPIRIN [Suspect]
     Indication: HAEMATOMA

REACTIONS (2)
  - Haematoma [None]
  - Carotid artery dissection [None]
